FAERS Safety Report 4417601-7 (Version None)
Quarter: 2004Q3

REPORT INFORMATION
  Report Type: 
  Country: None (occurrence: None)
  Receive Date: 20040803
  Receipt Date: 20040723
  Transmission Date: 20050211
  Serious: Yes (Other)
  Sender: FDA-Public Use
  Company Number: HQWYE414726JUL04

PATIENT
  Age: 38 Year
  Sex: Female

DRUGS (3)
  1. RAPAMUNE [Suspect]
     Indication: PROPHYLAXIS AGAINST TRANSPLANT REJECTION
     Dosage: 3 MG 1X PER 1 DAY ORAL
     Route: 048
     Dates: start: 20040622, end: 20040709
  2. CYCLOSPORINE [Suspect]
     Dosage: 400 MG 1X PER 1 DAY ORAL
     Route: 048
     Dates: start: 20040621, end: 20040709
  3. PREDNISONE [Suspect]
     Dosage: 40 MG 1X PER 1 DAY ORAL
     Route: 048
     Dates: start: 20040701, end: 20040709

REACTIONS (4)
  - KIDNEY RUPTURE [None]
  - NEPHRITIS INTERSTITIAL [None]
  - RENAL ABSCESS [None]
  - RENAL HAEMORRHAGE [None]
